FAERS Safety Report 7775433-6 (Version None)
Quarter: 2011Q3

REPORT INFORMATION
  Report Type: 
  Country: None (occurrence: None)
  Receive Date: 20110923
  Receipt Date: 20110919
  Transmission Date: 20111222
  Serious: Yes (Other)
  Sender: FDA-Public Use
  Company Number: PHHY2011TR83150

PATIENT
  Sex: Female
  Weight: 11 kg

DRUGS (1)
  1. EXJADE [Suspect]
     Indication: THALASSAEMIA BETA
     Dosage: 500 MG
     Route: 048
     Dates: start: 20100319

REACTIONS (3)
  - GUILLAIN-BARRE SYNDROME [None]
  - PAIN [None]
  - GAIT DISTURBANCE [None]
